FAERS Safety Report 6033320-8 (Version None)
Quarter: 2009Q1

REPORT INFORMATION
  Report Type: 
  Country: None (occurrence: None)
  Receive Date: 20090109
  Receipt Date: 20081229
  Transmission Date: 20090719
  Serious: Yes (Death)
  Sender: FDA-Public Use
  Company Number: GR-PFIZER INC-2008063374

PATIENT
  Age: 24 Year
  Sex: Male

DRUGS (3)
  1. PREDNISOLONE AND PREDNISOLONE STEAGLATE [Suspect]
     Indication: IDIOPATHIC THROMBOCYTOPENIC PURPURA
     Route: 042
  2. IMMUNOGLOBULINS [Concomitant]
     Indication: IDIOPATHIC THROMBOCYTOPENIC PURPURA
     Route: 042
  3. DANAZOL [Concomitant]
     Indication: HAEMORRHAGE

REACTIONS (2)
  - BRONCHOPULMONARY ASPERGILLOSIS [None]
  - CEREBRAL ASPERGILLOSIS [None]
